FAERS Safety Report 24266990 (Version 1)
Quarter: 2024Q3

REPORT INFORMATION
  Report Type: Other
  Country: GB (occurrence: GB)
  Receive Date: 20240830
  Receipt Date: 20240830
  Transmission Date: 20241017
  Serious: Yes (Other)
  Sender: IPCA
  Company Number: GB-MHRA-TPP8159406C6591870YC1724762728101

PATIENT

DRUGS (10)
  1. ALLOPURINOL [Suspect]
     Active Substance: ALLOPURINOL
     Indication: Gout
     Dosage: 100 MILLIGRAM, BID
     Route: 065
     Dates: start: 20240515
  2. NAPROXEN [Concomitant]
     Active Substance: NAPROXEN
     Indication: Product used for unknown indication
     Dosage: TAKE ONE TABLET TWICE DAILY WHEN REQUIRED FOR PAIN, WITH FOOD.
     Route: 065
     Dates: start: 20240619, end: 20240703
  3. ATORVASTATIN [Concomitant]
     Active Substance: ATORVASTATIN
     Indication: Product used for unknown indication
     Dosage: TAKE ONE TABLET EACH DAY TO HELP LOWER CHOLESTEROL
     Route: 065
     Dates: start: 20240424
  4. CLOPIDOGREL [Concomitant]
     Active Substance: CLOPIDOGREL BISULFATE
     Indication: Product used for unknown indication
     Dosage: TAKE ONE TABLET EACH DAY TO HELP PREVENT HEART ...
     Route: 065
     Dates: start: 20240424
  5. RYBELSUS [Concomitant]
     Active Substance: SEMAGLUTIDE
     Indication: Product used for unknown indication
     Dosage: TAKE ONE TABLET EACH DAY TO HELP CONTROL DIABET...
     Route: 065
     Dates: start: 20240515
  6. CANDESARTAN [Concomitant]
     Active Substance: CANDESARTAN
     Indication: Product used for unknown indication
     Dosage: 1 DOSAGE FORM, QD
     Route: 065
     Dates: start: 20240515
  7. COLCHICINE [Concomitant]
     Active Substance: COLCHICINE
     Indication: Product used for unknown indication
     Dosage: 1 DOSAGE FORM, QD
     Route: 065
     Dates: start: 20240515, end: 20240827
  8. FOLIC ACID [Concomitant]
     Active Substance: FOLIC ACID
     Indication: Product used for unknown indication
     Dosage: 1 DOSAGE FORM, QD
     Route: 065
     Dates: start: 20240515
  9. LANSOPRAZOLE [Concomitant]
     Active Substance: LANSOPRAZOLE
     Indication: Product used for unknown indication
     Dosage: TAKE ONE CAPSULE ONCE A DAY TO HELP PREVENT IND...
     Route: 065
     Dates: start: 20240515
  10. METFORMIN [Concomitant]
     Active Substance: METFORMIN HYDROCHLORIDE
     Indication: Product used for unknown indication
     Dosage: TAKE ONE CAPSULE ONCE A DAY TO HELP PREVENT IND...
     Route: 065
     Dates: start: 20240613, end: 20240813

REACTIONS (2)
  - Rash [Recovering/Resolving]
  - Skin reaction [Recovering/Resolving]
